FAERS Safety Report 6754335-8 (Version None)
Quarter: 2010Q2

REPORT INFORMATION
  Report Type: 
  Country: None (occurrence: None)
  Receive Date: 20100603
  Receipt Date: 20100517
  Transmission Date: 20101027
  Serious: Yes (Life-Threatening)
  Sender: FDA-Public Use
  Company Number: B0658415A

PATIENT
  Age: 33 Year
  Sex: Male

DRUGS (1)
  1. ARZERRA [Suspect]
     Indication: DRUG USE FOR UNKNOWN INDICATION
     Route: 042
     Dates: start: 20100427, end: 20100427

REACTIONS (3)
  - SWELLING [None]
  - THROAT IRRITATION [None]
  - THROAT TIGHTNESS [None]
